FAERS Safety Report 9086940 (Version 1)
Quarter: 2013Q1

REPORT INFORMATION
  Report Type: Spontaneous
  Country: FR (occurrence: FR)
  Receive Date: 20130131
  Receipt Date: 20130131
  Transmission Date: 20140127
  Serious: Yes (Death, Hospitalization, Other)
  Sender: FDA-Public Use
  Company Number: FR-PFIZER INC-2013033312

PATIENT
  Age: 81 Year
  Sex: Female

DRUGS (1)
  1. LYRICA [Suspect]
     Dosage: 50 MG, 2X/DAY
     Route: 048
     Dates: end: 20121113

REACTIONS (7)
  - Acute pulmonary oedema [Fatal]
  - Atrial fibrillation [Fatal]
  - Pneumonia [Recovering/Resolving]
  - Hypertension [Unknown]
  - Acute prerenal failure [Unknown]
  - Ejection fraction decreased [Unknown]
  - Pulmonary hypertension [Unknown]
